FAERS Safety Report 4582411-7 (Version None)
Quarter: 2005Q1

REPORT INFORMATION
  Report Type: 
  Country: None (occurrence: None)
  Receive Date: 20050119
  Receipt Date: 20040709
  Transmission Date: 20050727
  Serious: Yes (Other)
  Sender: FDA-Public Use
  Company Number: US-JNJFOC-20040304734

PATIENT
  Age: 48 Year
  Sex: Female
  Weight: 90.2658 kg

DRUGS (5)
  1. DOXIL [Suspect]
     Indication: BREAST CANCER METASTATIC
     Dosage: 76 MG, 1 IN 4 WEEK, INTRAVENOUS
     Route: 042
     Dates: start: 20040106, end: 20040302
  2. ZOFRAN [Concomitant]
  3. DECADRON [Concomitant]
  4. BENADRYL (DIPHENYDRAMINE HYDROCHLORIDE) [Concomitant]
  5. ZOMETA [Concomitant]

REACTIONS (2)
  - DRUG ERUPTION [None]
  - SKIN REACTION [None]
